FAERS Safety Report 16441478 (Version 1)
Quarter: 2019Q2

REPORT INFORMATION
  Report Type: Spontaneous
  Country: BE (occurrence: BE)
  Receive Date: 20190617
  Receipt Date: 20190617
  Transmission Date: 20190711
  Serious: Yes (Hospitalization)
  Sender: FDA-Public Use
  Company Number: BE-MYLANLABS-2019M1055508

PATIENT
  Age: 69 Year
  Sex: Female
  Weight: 73 kg

DRUGS (3)
  1. RIVAROXABAN [Interacting]
     Active Substance: RIVAROXABAN
     Indication: EMBOLISM VENOUS
     Dosage: 20 MILLIGRAM, QD
     Route: 048
  2. PAROXETINE. [Suspect]
     Active Substance: PAROXETINE
     Indication: PRODUCT USED FOR UNKNOWN INDICATION
     Dosage: UNK
     Route: 065
  3. DULOXETINE. [Interacting]
     Active Substance: DULOXETINE
     Indication: PRODUCT USED FOR UNKNOWN INDICATION
     Dosage: UNK
     Route: 065

REACTIONS (2)
  - Haematoma [Unknown]
  - Drug interaction [Unknown]
